FAERS Safety Report 16954907 (Version 1)
Quarter: 2019Q4

REPORT INFORMATION
  Report Type: Spontaneous
  Country: US (occurrence: US)
  Receive Date: 20191024
  Receipt Date: 20191024
  Transmission Date: 20200122
  Serious: Yes (Other)
  Sender: FDA-Public Use
  Company Number: US-009507513-1910USA011068

PATIENT
  Sex: Female

DRUGS (2)
  1. NEXPLANON [Suspect]
     Active Substance: ETONOGESTREL
     Dosage: 1 ROD; SULCUS OF ARM
     Route: 059
     Dates: end: 20191015
  2. NEXPLANON [Suspect]
     Active Substance: ETONOGESTREL
     Dosage: 1 ROD; SULCUS OF ARM
     Route: 059
     Dates: start: 20191015

REACTIONS (6)
  - Implant site haematoma [Recovering/Resolving]
  - Complication of device removal [Recovered/Resolved]
  - Implant site haemorrhage [Recovering/Resolving]
  - Device deployment issue [Not Recovered/Not Resolved]
  - Adhesion [Unknown]
  - Device deployment issue [Recovered/Resolved]

NARRATIVE: CASE EVENT DATE: 20191015
